FAERS Safety Report 22110007 (Version 1)
Quarter: 2023Q1

REPORT INFORMATION
  Report Type: Spontaneous
  Country: RU (occurrence: RU)
  Receive Date: 20230317
  Receipt Date: 20230317
  Transmission Date: 20230417
  Serious: Yes (Other)
  Sender: FDA-Public Use
  Company Number: RU-SERVIER-S23002595

PATIENT

DRUGS (5)
  1. ONCASPAR [Suspect]
     Active Substance: PEGASPARGASE
     Indication: Acute lymphocytic leukaemia
     Dosage: 1000 IU/M2
     Route: 042
     Dates: start: 20220819, end: 20220819
  2. ONCASPAR [Suspect]
     Active Substance: PEGASPARGASE
     Dosage: 1000 IU/M2
     Route: 042
     Dates: start: 20221124, end: 20221124
  3. ONCASPAR [Suspect]
     Active Substance: PEGASPARGASE
     Dosage: 1000 IU/M2
     Route: 030
     Dates: start: 20221208, end: 20221208
  4. ONCASPAR [Suspect]
     Active Substance: PEGASPARGASE
     Dosage: 1000 IU/M2
     Route: 042
     Dates: start: 20221228, end: 20221228
  5. ASPARAGINASE [Concomitant]
     Active Substance: ASPARAGINASE
     Indication: Acute lymphocytic leukaemia
     Dosage: 1000 UNK, UNK
     Route: 030
     Dates: start: 20220928, end: 20221122

REACTIONS (8)
  - Urticaria [Recovered/Resolved]
  - Face oedema [Recovered/Resolved]
  - Hyperaemia [Recovered/Resolved]
  - Bronchospasm [Recovered/Resolved]
  - Lacrimation increased [Recovered/Resolved]
  - Vomiting [Recovered/Resolved]
  - Oedema [Unknown]
  - Hyperaemia [Unknown]

NARRATIVE: CASE EVENT DATE: 20220101
